FAERS Safety Report 13630748 (Version 4)
Quarter: 2018Q4

REPORT INFORMATION
  Report Type: Spontaneous
  Country: JP (occurrence: JP)
  Receive Date: 20170608
  Receipt Date: 20181018
  Transmission Date: 20190204
  Serious: Yes (Life-Threatening, Other)
  Sender: FDA-Public Use
  Company Number: JP-BRISTOL-MYERS SQUIBB COMPANY-BMS-2017-050146

PATIENT
  Age: 49 Year
  Sex: Female
  Weight: 45 kg

DRUGS (2)
  1. LANSOPRAZOLE. [Concomitant]
     Active Substance: LANSOPRAZOLE
     Indication: CEREBRAL INFARCTION
     Dosage: 15 MG, QD
     Route: 048
     Dates: start: 20170508
  2. ELIQUIS [Suspect]
     Active Substance: APIXABAN
     Indication: ATRIAL FIBRILLATION
     Dosage: 5 MG, BID
     Route: 048
     Dates: start: 20170523, end: 20170528

REACTIONS (3)
  - Aneurysm [Unknown]
  - Cerebral haemorrhage [Recovered/Resolved with Sequelae]
  - Artery dissection [Unknown]

NARRATIVE: CASE EVENT DATE: 20170528
